FAERS Safety Report 6555173-1 (Version None)
Quarter: 2010Q1

REPORT INFORMATION
  Report Type: 
  Country: None (occurrence: None)
  Receive Date: 20100126
  Receipt Date: 20100126
  Transmission Date: 20100710
  Serious: Yes (Congenital Anomaly)
  Sender: FDA-Public Use
  Company Number: None

PATIENT
  Sex: Female
  Weight: 90.7194 kg

DRUGS (2)
  1. MIRENA [Suspect]
     Indication: CONTRACEPTION
     Dates: start: 20060605
  2. MIRENA [Suspect]
     Indication: CONTRACEPTION
     Dates: start: 20080605

REACTIONS (2)
  - DRUG EXPOSURE BEFORE PREGNANCY [None]
  - PREGNANCY [None]
